FAERS Safety Report 6249112-0 (Version None)
Quarter: 2009Q2

REPORT INFORMATION
  Report Type: 
  Country: None (occurrence: None)
  Receive Date: 20090625
  Receipt Date: 20090619
  Transmission Date: 20091009
  Serious: Yes (Hospitalization)
  Sender: FDA-Public Use
  Company Number: THQ2009A03070

PATIENT
  Age: 36 Year
  Sex: Female

DRUGS (15)
  1. LANSOPRAZOLE [Suspect]
     Dosage: 30 MG (30 MG, 1 IN 1 D) PER ORAL
     Route: 048
  2. DIAZEPAM [Suspect]
     Dosage: AS REQUIRED
  3. CLOZARIL [Suspect]
     Dosage: 250 MG (250 MG, 1 IN 1 D) PER ORAL
     Route: 048
     Dates: start: 20060605, end: 20060713
  4. CLOZARIL [Suspect]
     Dosage: 250 MG (250 MG, 1 IN 1 D) PER ORAL
     Route: 048
     Dates: start: 20090519
  5. FERROUS SULFATE TAB [Suspect]
     Dosage: 400 MG (200 MG, 2 IN 1 D) PER ORAL
     Route: 048
  6. FOLIC ACID [Suspect]
     Dosage: 5 MG (5 MG, 1 IN 1 D) PER ORAL
     Route: 048
  7. LACTULOSE [Suspect]
     Dosage: 10 ML 1X PER 1 PRN
  8. PERINDOPRIL [Suspect]
     Dosage: 2 MG (2 MG, 1 IN 1 D) PER ORAL
     Route: 048
  9. TRIMETHOPRIM [Suspect]
     Indication: URINARY TRACT INFECTION
  10. ZOPICLONE [Suspect]
     Dosage: 3.75 MG (3.75 MG, 1 IN 1 D)
  11. ABILIFY [Concomitant]
  12. BENDROFLUAZIDE (BENDROFLUMETHIAZIDE) [Concomitant]
  13. FUROSEMIDE [Concomitant]
  14. RAMIPRIL [Concomitant]
  15. ATORVASTATIN CALCIUM [Concomitant]

REACTIONS (12)
  - CARDIAC MURMUR [None]
  - CONSTIPATION [None]
  - DIABETES MELLITUS [None]
  - IRON DEFICIENCY ANAEMIA [None]
  - NEUTROPHILIA [None]
  - PHYSICAL ASSAULT [None]
  - PYREXIA [None]
  - SINUS TACHYCARDIA [None]
  - STAPHYLOCOCCAL BACTERAEMIA [None]
  - THROMBOCYTHAEMIA [None]
  - URINARY TRACT INFECTION [None]
  - WHITE BLOOD CELL COUNT INCREASED [None]
